FAERS Safety Report 7966684-6 (Version None)
Quarter: 2011Q4

REPORT INFORMATION
  Report Type: 
  Country: None (occurrence: None)
  Receive Date: 20111209
  Receipt Date: 20111202
  Transmission Date: 20120403
  Serious: No
  Sender: FDA-Public Use
  Company Number: US-BIOGENIDEC-2011BI045891

PATIENT
  Age: 48 Year
  Sex: Female

DRUGS (1)
  1. TYSABRI [Suspect]
     Indication: MULTIPLE SCLEROSIS
     Route: 042
     Dates: start: 20090916

REACTIONS (9)
  - FALL [None]
  - GENERAL SYMPTOM [None]
  - FATIGUE [None]
  - TREMOR [None]
  - MENTAL IMPAIRMENT [None]
  - COORDINATION ABNORMAL [None]
  - STRESS [None]
  - POST-TRAUMATIC STRESS DISORDER [None]
  - FEELING GUILTY [None]
